FAERS Safety Report 8789757 (Version 1)
Quarter: 2012Q4

REPORT INFORMATION
  Report Type: Spontaneous
  Country: US (occurrence: None)
  Receive Date: 20120911
  Receipt Date: 20120911
  Transmission Date: 20130627
  Serious: Yes (Other)
  Sender: FDA-Public Use
  Company Number: None

PATIENT
  Age: 80 Year
  Sex: Male

DRUGS (1)
  1. NEXAVAR 200 MG TABLET [Suspect]
     Indication: LIVER, CANCER OF
     Dosage: 400mg bid po
     Route: 048
     Dates: start: 20120815, end: 20120904

REACTIONS (1)
  - Rash [None]
